FAERS Safety Report 8756901 (Version 1)
Quarter: 2012Q4

REPORT INFORMATION
  Report Type: 
  Country: US (occurrence: US)
  Receive Date: 20120828
  Receipt Date: 20120828
  Transmission Date: 20130627
  Serious: Yes (Hospitalization)
  Sender: FDA-Public Use
  Company Number: US-BAYER-2012-086660

PATIENT
  Age: 37 Year
  Sex: Female
  Weight: 80.27 kg

DRUGS (4)
  1. YAZ [Suspect]
     Indication: CONTRACEPTION
  2. YAZ [Suspect]
     Indication: MENORRHAGIA
  3. GIANVI [Suspect]
  4. TORADOL [Concomitant]
     Dosage: UNK
     Dates: start: 20110112

REACTIONS (2)
  - Pulmonary infarction [None]
  - Pulmonary embolism [None]
